FAERS Safety Report 8309530-3 (Version None)
Quarter: 2012Q2

REPORT INFORMATION
  Report Type: 
  Country: None (occurrence: None)
  Receive Date: 20120420
  Receipt Date: 20120413
  Transmission Date: 20120825
  Serious: Yes (Disabling)
  Sender: FDA-Public Use
  Company Number: 2012SP008124

PATIENT
  Age: 14 Year
  Sex: Male
  Weight: 65 kg

DRUGS (3)
  1. ZOLOFT [Concomitant]
  2. REMERON [Suspect]
     Indication: DEPRESSION
     Dates: start: 20070703
  3. LAMICTAL [Concomitant]

REACTIONS (2)
  - CHONDROPATHY [None]
  - CHONDROMALACIA [None]
